FAERS Safety Report 8335879-4 (Version None)
Quarter: 2012Q2

REPORT INFORMATION
  Report Type: 
  Country: None (occurrence: None)
  Receive Date: 20120502
  Receipt Date: 20120502
  Transmission Date: 20120825
  Serious: Yes (Other)
  Sender: FDA-Public Use
  Company Number: None

PATIENT
  Age: 39 Year
  Sex: Female
  Weight: 92.0802 kg

DRUGS (5)
  1. DEPAKOTE [Concomitant]
  2. SEROQUEL [Concomitant]
  3. ESCITALOPRAM [Suspect]
     Indication: SCHIZOAFFECTIVE DISORDER
     Dosage: ONCE TAB PO QD
     Route: 048
     Dates: start: 20120410, end: 20120417
  4. ESCITALOPRAM [Suspect]
     Indication: DEPRESSION
     Dosage: ONCE TAB PO QD
     Route: 048
     Dates: start: 20120410, end: 20120417
  5. ESCITALOPRAM [Suspect]
     Indication: BIPOLAR DISORDER
     Dosage: ONCE TAB PO QD
     Route: 048
     Dates: start: 20120410, end: 20120417

REACTIONS (2)
  - RASH [None]
  - PRODUCT SUBSTITUTION ISSUE [None]
